FAERS Safety Report 17754850 (Version 1)
Quarter: 2020Q2

REPORT INFORMATION
  Report Type: Spontaneous
  Country: ES (occurrence: ES)
  Receive Date: 20200507
  Receipt Date: 20200507
  Transmission Date: 20200714
  Serious: Yes (Other)
  Sender: FDA-Public Use
  Company Number: ES-HORIZON-VIM-0064-2020

PATIENT
  Age: 62 Year
  Sex: Female
  Weight: 80 kg

DRUGS (8)
  1. DEMILOS [Concomitant]
     Active Substance: CALCIUM CARBONATE\CHOLECALCIFEROL
     Dosage: 600 MG/1000 UI
     Route: 048
     Dates: start: 2016
  2. OMEPRAZOL [Concomitant]
     Active Substance: OMEPRAZOLE
     Route: 048
     Dates: start: 2015
  3. METAMIZOL [Concomitant]
     Active Substance: METAMIZOLE SODIUM
     Route: 048
     Dates: start: 20180620
  4. BISOPROLOL [Concomitant]
     Active Substance: BISOPROLOL
     Dosage: 1,25 MG/DIA
     Route: 048
     Dates: start: 20180928
  5. TRYPTIZOL [Concomitant]
     Active Substance: AMITRIPTYLINE HYDROCHLORIDE
     Route: 048
     Dates: start: 2016
  6. VIMOVO [Suspect]
     Active Substance: ESOMEPRAZOLE MAGNESIUM\NAPROXEN
     Indication: FACET JOINT SYNDROME
     Dosage: 500 MG/20 MG
     Route: 048
     Dates: start: 20200129, end: 20200131
  7. PARACETAMOL [Concomitant]
     Active Substance: ACETAMINOPHEN
     Route: 048
     Dates: start: 20180620
  8. EUTIROX [Concomitant]
     Active Substance: LEVOTHYROXINE SODIUM
     Route: 048
     Dates: start: 20190404

REACTIONS (3)
  - Constipation [Recovered/Resolved]
  - Anuria [Recovered/Resolved]
  - Abdominal pain [Recovered/Resolved]

NARRATIVE: CASE EVENT DATE: 20200131
